FAERS Safety Report 6201470-9 (Version None)
Quarter: 2009Q2

REPORT INFORMATION
  Report Type: 
  Country: None (occurrence: None)
  Receive Date: 20090526
  Receipt Date: 20090520
  Transmission Date: 20091009
  Serious: Yes (Other)
  Sender: FDA-Public Use
  Company Number: IL-ROCHE-633992

PATIENT
  Sex: Male

DRUGS (5)
  1. MIRCERA [Suspect]
     Dosage: REPORTED START DATE: MAR/ APR 2009
     Route: 058
     Dates: start: 20090301
  2. MIRCERA [Suspect]
     Route: 058
  3. EPREX [Suspect]
     Dosage: REPORTED DOSE: 3000, REPORTED START DATE: JAN/ FEB 2009
     Route: 065
     Dates: start: 20090101, end: 20090301
  4. BETA BLOCKER NOS [Concomitant]
  5. DIURETIC [Concomitant]

REACTIONS (1)
  - HYPERGLYCAEMIA [None]
